FAERS Safety Report 10300502 (Version 1)
Quarter: 2014Q3

REPORT INFORMATION
  Report Type: Spontaneous
  Country: DE (occurrence: DE)
  Receive Date: 20140713
  Receipt Date: 20140713
  Transmission Date: 20150326
  Serious: Yes (Life-Threatening, Hospitalization)
  Sender: FDA-Public Use
  Company Number: DE-009507513-1407DEU004724

PATIENT
  Age: 70 Year
  Sex: Male

DRUGS (1)
  1. INTRON A [Suspect]
     Active Substance: INTERFERON ALFA-2B
     Indication: MALIGNANT MELANOMA STAGE II
     Dosage: HIGH DOSE
     Route: 058
     Dates: start: 20140603, end: 20140611

REACTIONS (3)
  - Depressed mood [Unknown]
  - Fall [Unknown]
  - Listless [Unknown]

NARRATIVE: CASE EVENT DATE: 20140604
